FAERS Safety Report 7109337-9 (Version None)
Quarter: 2010Q4

REPORT INFORMATION
  Report Type: 
  Country: None (occurrence: None)
  Receive Date: 20101118
  Receipt Date: 20101109
  Transmission Date: 20110411
  Serious: Yes (Hospitalization)
  Sender: FDA-Public Use
  Company Number: US-BIOGENIDEC-2010BI038464

PATIENT
  Age: 64 Year
  Sex: Female

DRUGS (3)
  1. TYSABRI [Suspect]
     Indication: MULTIPLE SCLEROSIS
     Route: 042
     Dates: start: 20050131, end: 20050101
  2. TYSABRI [Suspect]
     Route: 042
     Dates: start: 20070806
  3. AVONEX [Concomitant]
     Indication: MULTIPLE SCLEROSIS
     Route: 030
     Dates: start: 20010724

REACTIONS (3)
  - CELLULITIS [None]
  - OSTEOMYELITIS [None]
  - SKIN LACERATION [None]
